FAERS Safety Report 14173690 (Version 1)
Quarter: 2017Q4

REPORT INFORMATION
  Report Type: Spontaneous
  Country: US (occurrence: US)
  Receive Date: 20171109
  Receipt Date: 20171109
  Transmission Date: 20180321
  Serious: Yes (Life-Threatening, Hospitalization, Other)
  Sender: FDA-Public Use
  Company Number: US-VISTAPHARM, INC.-VER201710-001036

PATIENT
  Age: 45 Year
  Sex: Male

DRUGS (5)
  1. METHADONE [Suspect]
     Active Substance: METHADONE HYDROCHLORIDE
     Indication: RENAL PAIN
     Route: 048
  2. DESIPRAMINE [Concomitant]
     Active Substance: DESIPRAMINE
     Indication: INSOMNIA
  3. METHADONE [Suspect]
     Active Substance: METHADONE HYDROCHLORIDE
  4. DESIPRAMINE [Concomitant]
     Active Substance: DESIPRAMINE
  5. DULOXETINE. [Suspect]
     Active Substance: DULOXETINE
     Indication: PRODUCT USE IN UNAPPROVED INDICATION

REACTIONS (3)
  - Serotonin syndrome [Recovered/Resolved]
  - Drug interaction [Unknown]
  - Drug administration error [Unknown]
